FAERS Safety Report 5370962-7 (Version None)
Quarter: 2007Q2

REPORT INFORMATION
  Report Type: 
  Country: None (occurrence: None)
  Receive Date: 20070626
  Receipt Date: 20070619
  Transmission Date: 20071010
  Serious: Yes (Other)
  Sender: FDA-Public Use
  Company Number: CI-BOEHRINGER INGELHEIM PHARMACEUTICALS, INC.-2007-DE-03654GD

PATIENT

DRUGS (6)
  1. NEVIRAPINE [Suspect]
     Indication: HUMAN IMMUNODEFICIENCY VIRUS TRANSMISSION
  2. NEVIRAPINE [Suspect]
     Indication: PROPHYLAXIS
     Route: 015
  3. ZIDOVUDINE [Suspect]
     Indication: HUMAN IMMUNODEFICIENCY VIRUS TRANSMISSION
     Dosage: 2 MG/KG EVERY 6 HOURS
     Route: 048
  4. ZIDOVUDINE [Suspect]
     Indication: PROPHYLAXIS
     Route: 015
  5. LAMIVUDINE [Suspect]
     Indication: HUMAN IMMUNODEFICIENCY VIRUS TRANSMISSION
     Route: 015
  6. LAMIVUDINE [Suspect]
     Indication: PROPHYLAXIS

REACTIONS (1)
  - HIV INFECTION [None]
